FAERS Safety Report 7609651-4 (Version None)
Quarter: 2011Q3

REPORT INFORMATION
  Report Type: 
  Country: None (occurrence: None)
  Receive Date: 20110714
  Receipt Date: 20110705
  Transmission Date: 20111222
  Serious: Yes (Other)
  Sender: FDA-Public Use
  Company Number: US-ASTRAZENECA-2011SE34280

PATIENT
  Age: 69 Year
  Sex: Female

DRUGS (2)
  1. NEXIUM [Suspect]
     Route: 048
  2. SYMBICORT [Suspect]
     Route: 055

REACTIONS (7)
  - INTERVERTEBRAL DISC COMPRESSION [None]
  - SURGERY [None]
  - ORAL FUNGAL INFECTION [None]
  - DRUG DOSE OMISSION [None]
  - RESTLESS LEGS SYNDROME [None]
  - ABDOMINAL DISCOMFORT [None]
  - OSTEOPOROSIS [None]
